FAERS Safety Report 5095812-8 (Version None)
Quarter: 2006Q3

REPORT INFORMATION
  Report Type: 
  Country: None (occurrence: None)
  Receive Date: 20060905
  Receipt Date: 20060822
  Transmission Date: 20061208
  Serious: Yes (Other)
  Sender: FDA-Public Use
  Company Number: US-JNJFOC-20060500684

PATIENT
  Age: 69 Year
  Sex: Female
  Weight: 93 kg

DRUGS (4)
  1. LEVAQUIN [Suspect]
     Indication: POSTOPERATIVE INFECTION
     Route: 042
     Dates: start: 20051201, end: 20060101
  2. LEVAQUIN [Suspect]
     Route: 048
     Dates: start: 20060101, end: 20060201
  3. THROMBIN [Concomitant]
     Route: 042
  4. HEPARIN [Concomitant]
     Route: 058

REACTIONS (1)
  - RETINAL DETACHMENT [None]
